FAERS Safety Report 11376444 (Version 2)
Quarter: 2015Q3

REPORT INFORMATION
  Report Type: Report from Study
  Country: US (occurrence: US)
  Receive Date: 20150813
  Receipt Date: 20150826
  Transmission Date: 20151125
  Serious: Yes (Other)
  Sender: FDA-Public Use
  Company Number: US-GILEAD-2015-0166295

PATIENT
  Age: 60 Year
  Sex: Female

DRUGS (1)
  1. LEDIPASVIR/SOFOSBUVIR [Suspect]
     Active Substance: LEDIPASVIR\SOFOSBUVIR
     Indication: CHRONIC HEPATITIS C
     Dosage: 1 DF, UNK
     Route: 048
     Dates: start: 201507

REACTIONS (9)
  - Haematochezia [Unknown]
  - Emotional disorder [Unknown]
  - Confusional state [Unknown]
  - Headache [Unknown]
  - Crying [Unknown]
  - Fatigue [Unknown]
  - Nausea [Unknown]
  - Insomnia [Unknown]
  - Gingival bleeding [Unknown]
